FAERS Safety Report 9225705 (Version 1)
Quarter: 2013Q1

REPORT INFORMATION
  Report Type: Spontaneous
  Country: US (occurrence: None)
  Receive Date: 20120912
  Receipt Date: 20120912
  Transmission Date: 20140127
  Serious: No
  Sender: FDA-Public Use
  Company Number: 2012SP033720

PATIENT
  Age: 63 Year
  Sex: Female

DRUGS (4)
  1. PEGINTRON [Suspect]
     Indication: CHRONIC HEPATITIS C
     Dates: start: 20111214
  2. VICTRELIS [Suspect]
     Indication: PRODUCT USED FOR UNKNOWN INDICATION
  3. RIBAPAK [Suspect]
     Indication: PRODUCT USED FOR UNKNOWN INDICATION
  4. PROCRIT [Concomitant]

REACTIONS (1)
  - Viral load increased [None]
